FAERS Safety Report 21325749 (Version 27)
Quarter: 2024Q4

REPORT INFORMATION
  Report Type: Spontaneous
  Country: CA (occurrence: CA)
  Receive Date: 20220913
  Receipt Date: 20241224
  Transmission Date: 20250115
  Serious: Yes (Other)
  Sender: CELLTRION
  Company Number: CA-CELLTRION INC.-2019CA027206

PATIENT

DRUGS (50)
  1. INFLECTRA [Suspect]
     Active Substance: INFLIXIMAB-DYYB
     Indication: Crohn^s disease
     Dosage: 500 MG,EVERY 5 WEEKS
     Route: 042
     Dates: start: 20191219
  2. INFLECTRA [Suspect]
     Active Substance: INFLIXIMAB-DYYB
     Dosage: 500 MG,EVERY 5 WEEKS
     Route: 042
     Dates: start: 20200225
  3. INFLECTRA [Suspect]
     Active Substance: INFLIXIMAB-DYYB
     Dosage: 500 MG,EVERY 5 WEEKS
     Route: 042
     Dates: start: 20200415
  4. INFLECTRA [Suspect]
     Active Substance: INFLIXIMAB-DYYB
     Dosage: 500 MG,EVERY 5 WEEKS
     Route: 042
     Dates: start: 20200525
  5. INFLECTRA [Suspect]
     Active Substance: INFLIXIMAB-DYYB
     Dosage: 500 MG,EVERY 5 WEEKS
     Route: 042
     Dates: start: 20200627
  6. INFLECTRA [Suspect]
     Active Substance: INFLIXIMAB-DYYB
     Dosage: 500 MG,EVERY 5 WEEKS
     Route: 042
     Dates: start: 20200730
  7. INFLECTRA [Suspect]
     Active Substance: INFLIXIMAB-DYYB
     Dosage: 500 MG,EVERY 5 WEEKS
     Route: 042
     Dates: start: 20200905
  8. INFLECTRA [Suspect]
     Active Substance: INFLIXIMAB-DYYB
     Dosage: 500 MG,EVERY 5 WEEKS
     Route: 042
     Dates: start: 20201010
  9. INFLECTRA [Suspect]
     Active Substance: INFLIXIMAB-DYYB
     Dosage: 500 MG,EVERY 5 WEEKS
     Route: 042
     Dates: start: 20201114
  10. INFLECTRA [Suspect]
     Active Substance: INFLIXIMAB-DYYB
     Dosage: 500 MG,EVERY 5 WEEKS
     Route: 042
     Dates: start: 20201218
  11. INFLECTRA [Suspect]
     Active Substance: INFLIXIMAB-DYYB
     Dosage: 500 MG,EVERY 5 WEEKS
     Route: 042
     Dates: start: 20210227
  12. INFLECTRA [Suspect]
     Active Substance: INFLIXIMAB-DYYB
     Dosage: 500 MG,EVERY 5 WEEKS
     Route: 042
     Dates: start: 20210403
  13. INFLECTRA [Suspect]
     Active Substance: INFLIXIMAB-DYYB
     Dosage: 500 MG,EVERY 5 WEEKS
     Route: 042
     Dates: start: 20210508
  14. INFLECTRA [Suspect]
     Active Substance: INFLIXIMAB-DYYB
     Dosage: 500 MG,EVERY 5 WEEKS
     Route: 042
     Dates: start: 20210612
  15. INFLECTRA [Suspect]
     Active Substance: INFLIXIMAB-DYYB
     Dosage: 500 MG,EVERY 5 WEEKS
     Route: 042
     Dates: start: 20210717
  16. INFLECTRA [Suspect]
     Active Substance: INFLIXIMAB-DYYB
     Dosage: 500 MG,EVERY 5 WEEKS
     Route: 042
     Dates: start: 20210827
  17. INFLECTRA [Suspect]
     Active Substance: INFLIXIMAB-DYYB
     Dosage: 500 MG,EVERY 5 WEEKS
     Route: 042
     Dates: start: 20210924
  18. INFLECTRA [Suspect]
     Active Substance: INFLIXIMAB-DYYB
     Dosage: 500 MG,EVERY 5 WEEKS
     Route: 042
     Dates: start: 20211001
  19. INFLECTRA [Suspect]
     Active Substance: INFLIXIMAB-DYYB
     Dosage: 500 MG,EVERY 5 WEEKS
     Route: 042
     Dates: start: 20211105
  20. INFLECTRA [Suspect]
     Active Substance: INFLIXIMAB-DYYB
     Dosage: 500 MG,EVERY 5 WEEKS
     Route: 042
     Dates: start: 20211211, end: 20211211
  21. INFLECTRA [Suspect]
     Active Substance: INFLIXIMAB-DYYB
     Dosage: 500 MG,EVERY 5 WEEKS
     Route: 042
     Dates: start: 20220115
  22. INFLECTRA [Suspect]
     Active Substance: INFLIXIMAB-DYYB
     Dosage: 500 MG,EVERY 5 WEEKS
     Route: 042
     Dates: start: 20220219
  23. INFLECTRA [Suspect]
     Active Substance: INFLIXIMAB-DYYB
     Dosage: 500 MG,EVERY 5 WEEKS
     Route: 042
     Dates: start: 20220331
  24. INFLECTRA [Suspect]
     Active Substance: INFLIXIMAB-DYYB
     Dosage: 500 MG,EVERY 5 WEEKS
     Route: 042
     Dates: start: 20220430
  25. INFLECTRA [Suspect]
     Active Substance: INFLIXIMAB-DYYB
     Dosage: EVERY 5 WEEKS
     Route: 042
     Dates: start: 20220604
  26. INFLECTRA [Suspect]
     Active Substance: INFLIXIMAB-DYYB
     Dosage: 500 MG,EVERY 5 WEEKS
     Route: 042
     Dates: start: 20220709
  27. INFLECTRA [Suspect]
     Active Substance: INFLIXIMAB-DYYB
     Dosage: 500 MG,EVERY 5 WEEKS
     Route: 042
     Dates: start: 20220813
  28. INFLECTRA [Suspect]
     Active Substance: INFLIXIMAB-DYYB
     Dosage: 500 MG,EVERY 5 WEEKS
     Route: 042
     Dates: start: 20220917
  29. INFLECTRA [Suspect]
     Active Substance: INFLIXIMAB-DYYB
     Dosage: 500 MG,EVERY 5 WEEKS
     Route: 042
     Dates: start: 20221022
  30. INFLECTRA [Suspect]
     Active Substance: INFLIXIMAB-DYYB
     Dosage: 500 MG,EVERY 5 WEEKS
     Route: 042
     Dates: start: 20221126
  31. INFLECTRA [Suspect]
     Active Substance: INFLIXIMAB-DYYB
     Dosage: 500 MG,EVERY 5 WEEKS
     Route: 042
     Dates: start: 20221230
  32. INFLECTRA [Suspect]
     Active Substance: INFLIXIMAB-DYYB
     Dosage: 500 MG,EVERY 5 WEEKS
     Route: 042
     Dates: start: 20230203
  33. INFLECTRA [Suspect]
     Active Substance: INFLIXIMAB-DYYB
     Dosage: 500 MG,EVERY 5 WEEKS
     Route: 042
     Dates: start: 20230310
  34. INFLECTRA [Suspect]
     Active Substance: INFLIXIMAB-DYYB
     Dosage: 500 MG,EVERY 5 WEEKS
     Route: 042
     Dates: start: 20230414
  35. INFLECTRA [Suspect]
     Active Substance: INFLIXIMAB-DYYB
     Dosage: 500 MG,EVERY 5 WEEKS
     Route: 042
     Dates: start: 20230519
  36. INFLECTRA [Suspect]
     Active Substance: INFLIXIMAB-DYYB
     Dosage: 500 MG,EVERY 5 WEEKS
     Route: 042
     Dates: start: 20230623
  37. INFLECTRA [Suspect]
     Active Substance: INFLIXIMAB-DYYB
     Dosage: 500 MG,EVERY 5 WEEKS
     Route: 042
     Dates: start: 20230812
  38. INFLECTRA [Suspect]
     Active Substance: INFLIXIMAB-DYYB
     Dosage: 500 MG,EVERY 5 WEEKS
     Route: 042
     Dates: start: 20230921
  39. INFLECTRA [Suspect]
     Active Substance: INFLIXIMAB-DYYB
     Dosage: 500 MG,EVERY 5 WEEKS
     Route: 042
     Dates: start: 20231027
  40. INFLECTRA [Suspect]
     Active Substance: INFLIXIMAB-DYYB
     Dosage: 500 MG,EVERY 5 WEEKS
     Route: 042
     Dates: start: 20231220
  41. INFLECTRA [Suspect]
     Active Substance: INFLIXIMAB-DYYB
     Dosage: 500 MG,EVERY 5 WEEKS
     Route: 042
     Dates: start: 20240203
  42. INFLECTRA [Suspect]
     Active Substance: INFLIXIMAB-DYYB
     Dosage: 500 MG,EVERY 5 WEEKS
     Route: 042
     Dates: start: 20240308
  43. INFLECTRA [Suspect]
     Active Substance: INFLIXIMAB-DYYB
     Dosage: 500 MG,EVERY 5 WEEKS
     Route: 042
     Dates: start: 20240412
  44. INFLECTRA [Suspect]
     Active Substance: INFLIXIMAB-DYYB
     Dosage: 500 MG,EVERY 5 WEEKS
     Route: 042
     Dates: start: 20240517
  45. INFLECTRA [Suspect]
     Active Substance: INFLIXIMAB-DYYB
     Dosage: 500 MG,EVERY 5 WEEKS
     Route: 042
     Dates: start: 20240621
  46. INFLECTRA [Suspect]
     Active Substance: INFLIXIMAB-DYYB
     Dosage: 500 MG,EVERY 5 WEEKS
     Route: 042
     Dates: start: 20240726
  47. INFLECTRA [Suspect]
     Active Substance: INFLIXIMAB-DYYB
     Dosage: 500 MG,EVERY 5 WEEKS
     Route: 042
     Dates: start: 20241004
  48. INFLECTRA [Suspect]
     Active Substance: INFLIXIMAB-DYYB
     Dosage: 500 MG,EVERY 5 WEEKS
     Route: 042
     Dates: start: 20241108
  49. INFLECTRA [Suspect]
     Active Substance: INFLIXIMAB-DYYB
     Dosage: 500 MG,EVERY 5 WEEKS
     Route: 042
     Dates: start: 20241213
  50. COVID-19 VACCINE [Concomitant]
     Indication: COVID-19 immunisation
     Dosage: DOSE NUMBER UNKNOWN, SINGLE
     Dates: start: 202404, end: 202404

REACTIONS (22)
  - Gastrointestinal obstruction [Recovered/Resolved]
  - Fistula [Recovered/Resolved]
  - Lower respiratory tract infection [Recovering/Resolving]
  - Dehydration [Not Recovered/Not Resolved]
  - Micturition urgency [Not Recovered/Not Resolved]
  - Off label use [Unknown]
  - Off label use [Unknown]
  - Off label use [Unknown]
  - Intentional product use issue [Unknown]
  - Condition aggravated [Not Recovered/Not Resolved]
  - Aphthous ulcer [Recovered/Resolved]
  - Hypertension [Unknown]
  - Sinusitis [Unknown]
  - Bronchitis [Unknown]
  - Arthralgia [Recovered/Resolved]
  - Skin lesion [Unknown]
  - Mouth ulceration [Recovered/Resolved]
  - Blood pressure diastolic increased [Unknown]
  - Blood pressure increased [Unknown]
  - Anal fistula [Recovered/Resolved]
  - Localised infection [Unknown]
  - COVID-19 [Recovered/Resolved]

NARRATIVE: CASE EVENT DATE: 20200415
